FAERS Safety Report 18485384 (Version 1)
Quarter: 2020Q4

REPORT INFORMATION
  Report Type: Spontaneous
  Country: US (occurrence: US)
  Receive Date: 20201110
  Receipt Date: 20201110
  Transmission Date: 20210114
  Serious: No
  Sender: FDA-Public Use
  Company Number: US-MISSION PHARMACAL COMPANY-2094742

PATIENT
  Age: 55 Year
  Sex: Male

DRUGS (1)
  1. UROCIT-K [Suspect]
     Active Substance: POTASSIUM CITRATE
     Indication: NEPHROLITHIASIS
     Route: 048

REACTIONS (3)
  - Nephrolithiasis [Recovered/Resolved]
  - Incorrect product administration duration [Recovered/Resolved]
  - Malabsorption [Recovered/Resolved]
